FAERS Safety Report 15211992 (Version 3)
Quarter: 2019Q2

REPORT INFORMATION
  Report Type: Spontaneous
  Country: JP (occurrence: JP)
  Receive Date: 20180730
  Receipt Date: 20190506
  Transmission Date: 20190711
  Serious: Yes (Hospitalization, Other)
  Sender: FDA-Public Use
  Company Number: JP-CONCORDIA PHARMACEUTICALS INC.-E2B_00008213

PATIENT
  Age: 45 Year
  Sex: Female

DRUGS (3)
  1. METHYCOBAL [Concomitant]
     Active Substance: METHYLCOBALAMIN
     Indication: SUDDEN HEARING LOSS
  2. ADETPHOS KOWA [Concomitant]
     Indication: SUDDEN HEARING LOSS
     Route: 048
  3. PREDNISOLONE. [Suspect]
     Active Substance: PREDNISOLONE
     Indication: SUDDEN HEARING LOSS
     Route: 042

REACTIONS (2)
  - Skin reaction [Recovering/Resolving]
  - Drug eruption [Recovering/Resolving]
